FAERS Safety Report 6593165-7 (Version None)
Quarter: 2010Q1

REPORT INFORMATION
  Report Type: 
  Country: None (occurrence: None)
  Receive Date: 20100222
  Receipt Date: 20100211
  Transmission Date: 20100710
  Serious: Yes (Other)
  Sender: FDA-Public Use
  Company Number: PHEH2004US07834

PATIENT
  Sex: Female
  Weight: 68.027 kg

DRUGS (50)
  1. ESTRADERM [Suspect]
     Indication: MENOPAUSE
     Dosage: 0.05 MG
     Route: 062
     Dates: start: 20021219, end: 20030901
  2. ESTRADIOL [Suspect]
     Indication: HORMONE REPLACEMENT THERAPY
     Dosage: 0.05MG
     Dates: start: 20030212, end: 20030711
  3. MEDROXYPROGESTERONE ACETATE [Suspect]
     Indication: HORMONE REPLACEMENT THERAPY
     Dosage: 2.5 MG, UNK
     Route: 048
     Dates: start: 19990409, end: 20021219
  4. ESTROGEN NOS [Suspect]
  5. PREMPRO [Suspect]
     Indication: HORMONE REPLACEMENT THERAPY
  6. PREMARIN [Suspect]
     Indication: MENOPAUSE
     Dosage: 0.3 MG, QD
     Route: 048
     Dates: start: 19940722, end: 20030901
  7. PREMARIN [Suspect]
     Dosage: 0.625 MG, QD
     Route: 048
     Dates: start: 20010308, end: 20020411
  8. PROVERA [Suspect]
     Indication: MENOPAUSE
     Dosage: 2.5 MG, UNK
     Route: 048
     Dates: start: 19890101, end: 20030901
  9. PROMETRIUM [Suspect]
     Indication: HORMONE REPLACEMENT THERAPY
     Dosage: 200 MG, UNK
     Route: 048
     Dates: start: 20030212, end: 20030719
  10. CYCRIN [Suspect]
     Dosage: 2.5 MG, QD
     Route: 048
     Dates: start: 19940722, end: 19960216
  11. NOVOLIN [Concomitant]
     Indication: DIABETES MELLITUS
     Dosage: 70/30; 30UAM, 30UPM
  12. ATENOLOL [Concomitant]
     Indication: HYPERTENSION
     Dosage: 100MG
  13. GLUCOPHAGE [Concomitant]
     Indication: DIABETES MELLITUS
     Dosage: 500MG
  14. LARIAM [Concomitant]
     Indication: MALARIA
     Dosage: 250MG
  15. NORVASC [Concomitant]
     Dosage: 10MG QD
  16. HYDROCHLOROTHIAZIDE [Concomitant]
     Dosage: 25MG QD
  17. LIPITOR [Concomitant]
     Dosage: 10MG QD
  18. SINGULAIR [Concomitant]
     Dosage: 10MG QD
  19. AVANDAMET [Concomitant]
     Dosage: 20MG/500MG QD
  20. ALBUTEROL [Concomitant]
     Dosage: 83MG QD
  21. PRINIVIL [Concomitant]
     Indication: HYPERTENSION
     Dosage: 40MG
  22. PLENDIL [Concomitant]
     Dosage: 10MG
  23. FUROSEMIDE [Concomitant]
     Dosage: 20MG
  24. ZESTRIL [Concomitant]
     Dosage: 20MG
  25. TENEX [Concomitant]
     Dosage: 2MG BID
  26. COZAAR [Concomitant]
     Dosage: 100MG BID
  27. DOXAZOSIN MESYLATE [Concomitant]
  28. VERAPAMIL [Concomitant]
  29. LISINOPRIL [Concomitant]
  30. KLOR-CON [Concomitant]
  31. LOVASTATIN [Concomitant]
  32. HUMULIN 70/30 [Concomitant]
  33. ADVAIR DISKUS 100/50 [Concomitant]
  34. XOPENEX [Concomitant]
  35. ZYRTEC [Concomitant]
  36. VITAMIN B-12 [Concomitant]
  37. ASPIRIN [Concomitant]
  38. MULTI-VITAMINS [Concomitant]
  39. CALCIUM [Concomitant]
  40. PREDNISONE [Concomitant]
  41. CARDURA                                 /IRE/ [Concomitant]
  42. FOSAMAX [Concomitant]
  43. NASONEX [Concomitant]
  44. GLUCOSAMINE W/CHONDROITIN [Concomitant]
  45. ADVAIR DISKUS 100/50 [Concomitant]
  46. ALDACTONE [Concomitant]
  47. CALCIUM WITH VITAMIN D [Concomitant]
  48. K-DUR [Concomitant]
  49. NEULASTA [Concomitant]
  50. LEVAQUIN [Concomitant]

REACTIONS (70)
  - ABDOMINAL PAIN [None]
  - ADRENAL MASS [None]
  - ANAEMIA [None]
  - ARTERIAL OCCLUSIVE DISEASE [None]
  - ARTHRALGIA [None]
  - ARTHRITIS [None]
  - ASTHMA [None]
  - BACK PAIN [None]
  - BLOOD CHOLESTEROL INCREASED [None]
  - BREAST CALCIFICATIONS [None]
  - BREAST CANCER [None]
  - BREAST FIBROSIS [None]
  - BREAST MASS [None]
  - BRONCHITIS [None]
  - CHEMOTHERAPY [None]
  - CHEST PAIN [None]
  - CHRONIC OBSTRUCTIVE PULMONARY DISEASE [None]
  - CHRONIC SINUSITIS [None]
  - DEPRESSION [None]
  - DIVERTICULITIS [None]
  - DIVERTICULUM [None]
  - DYSPNOEA [None]
  - DYSURIA [None]
  - ETHMOID SINUS SURGERY [None]
  - EXTRASKELETAL OSSIFICATION [None]
  - FATIGUE [None]
  - FIBROUS HISTIOCYTOMA [None]
  - GASTROOESOPHAGEAL REFLUX DISEASE [None]
  - HEADACHE [None]
  - HEPATIC CYST [None]
  - HERPES ZOSTER [None]
  - HOT FLUSH [None]
  - HYPERLIPIDAEMIA [None]
  - HYPOKALAEMIA [None]
  - INJURY [None]
  - INSOMNIA [None]
  - LEUKOPENIA [None]
  - LIVER DISORDER [None]
  - MALIGNANT BREAST LUMP REMOVAL [None]
  - MASTECTOMY [None]
  - MEDICATION ERROR [None]
  - METASTASES TO BONE [None]
  - METASTASES TO LYMPH NODES [None]
  - MINERAL METABOLISM DISORDER [None]
  - MITRAL VALVE SCLEROSIS [None]
  - MOBILITY DECREASED [None]
  - MUSCULAR WEAKNESS [None]
  - MYCOBACTERIUM TEST POSITIVE [None]
  - NEPHROLITHIASIS [None]
  - NOCTURIA [None]
  - OEDEMA PERIPHERAL [None]
  - OSTEOPENIA [None]
  - PAIN IN EXTREMITY [None]
  - PARANASAL BIOPSY ABNORMAL [None]
  - PERIPHERAL COLDNESS [None]
  - POLLAKIURIA [None]
  - POST HERPETIC NEURALGIA [None]
  - PROTEINURIA [None]
  - PULMONARY FIBROSIS [None]
  - PULMONARY MASS [None]
  - RADIOTHERAPY [None]
  - RASH [None]
  - RENAL CYST [None]
  - RENAL DISORDER [None]
  - RENAL FAILURE [None]
  - RHINITIS ALLERGIC [None]
  - RHINORRHOEA [None]
  - SINUS ANTROSTOMY [None]
  - SKIN DISCOLOURATION [None]
  - TRICUSPID VALVE INCOMPETENCE [None]
